FAERS Safety Report 8884567 (Version 2)
Quarter: 2012Q4

REPORT INFORMATION
  Report Type: 
  Country: US (occurrence: US)
  Receive Date: 20121102
  Receipt Date: 20121226
  Transmission Date: 20130627
  Serious: Yes (Hospitalization, Other)
  Sender: FDA-Public Use
  Company Number: US-ASTRAZENECA-2012SE82752

PATIENT
  Age: 73 Year
  Sex: Male
  Weight: 113.4 kg

DRUGS (8)
  1. ATENOLOL [Suspect]
     Route: 065
  2. NEXIUM [Suspect]
     Indication: GASTROOESOPHAGEAL REFLUX DISEASE
     Route: 048
     Dates: start: 1992
  3. MECLIZINE [Concomitant]
     Indication: DIZZINESS
     Dates: start: 2008
  4. ENAPRIL [Concomitant]
  5. LIPITOR [Concomitant]
  6. ZETIA [Concomitant]
     Dates: start: 2006
  7. PRADAXA [Concomitant]
     Dates: start: 201211
  8. SOTALOL [Concomitant]
     Dates: start: 201211

REACTIONS (3)
  - Atrial fibrillation [Unknown]
  - Cardiac disorder [Unknown]
  - Off label use [Not Recovered/Not Resolved]
